FAERS Safety Report 5977518-3 (Version None)
Quarter: 2008Q4

REPORT INFORMATION
  Report Type: 
  Country: None (occurrence: None)
  Receive Date: 20081125
  Receipt Date: 20081113
  Transmission Date: 20090506
  Serious: Yes (Other)
  Sender: FDA-Public Use
  Company Number: 231821K08USA

PATIENT
  Age: 52 Year
  Sex: Female

DRUGS (5)
  1. REBIF [Suspect]
     Indication: MULTIPLE SCLEROSIS
     Dosage: 44 MCG, 3 IN 1 WEEKS, SUBCUTANEOUS
     Route: 058
     Dates: start: 20030127
  2. BACLOFEN [Concomitant]
  3. DETROL LA [Concomitant]
  4. AMANTADINE HCL [Concomitant]
  5. CELEXA (CITALOPRAM HYDROBROMDIE) [Concomitant]

REACTIONS (2)
  - BONE DISORDER [None]
  - BUNION [None]
